FAERS Safety Report 15773077 (Version 3)
Quarter: 2019Q1

REPORT INFORMATION
  Report Type: Report from Study
  Country: US (occurrence: US)
  Receive Date: 20181228
  Receipt Date: 20190131
  Transmission Date: 20190417
  Serious: Yes (Death, Hospitalization)
  Sender: FDA-Public Use
  Company Number: US-ACTELION-A-US2018-180992

PATIENT
  Age: 73 Year
  Sex: Female

DRUGS (4)
  1. UPTRAVI [Suspect]
     Active Substance: SELEXIPAG
     Indication: PULMONARY ARTERIAL HYPERTENSION
     Dosage: 600 MCG, QD
     Route: 048
     Dates: start: 20181127
  2. UPTRAVI [Suspect]
     Active Substance: SELEXIPAG
     Dosage: 800 MCG, BID
     Route: 048
     Dates: start: 20180929, end: 20181020
  3. UPTRAVI [Suspect]
     Active Substance: SELEXIPAG
     Dosage: 400 MCG MORNING, 600 MCG EVENING
     Route: 048
     Dates: end: 20190115
  4. UPTRAVI [Suspect]
     Active Substance: SELEXIPAG
     Dosage: 600 MCG, BID
     Route: 048
     Dates: start: 20180929

REACTIONS (9)
  - Nausea [Unknown]
  - Hypotension [Unknown]
  - Unresponsive to stimuli [Unknown]
  - Musculoskeletal pain [Unknown]
  - Myalgia [Unknown]
  - Death [Fatal]
  - Eye swelling [Unknown]
  - Swelling face [Unknown]
  - Eye inflammation [Unknown]

NARRATIVE: CASE EVENT DATE: 20181020
